FAERS Safety Report 20566160 (Version 1)
Quarter: 2022Q1

REPORT INFORMATION
  Report Type: Spontaneous
  Country: GB (occurrence: GB)
  Receive Date: 20220308
  Receipt Date: 20220308
  Transmission Date: 20220423
  Serious: Yes (Hospitalization, Other)
  Sender: FDA-Public Use
  Company Number: None

PATIENT
  Age: 35 Year
  Sex: Female

DRUGS (3)
  1. FLUTICASONE FUROATE [Suspect]
     Active Substance: FLUTICASONE FUROATE
     Indication: Acute sinusitis
     Dosage: 27.5 UG
     Route: 045
     Dates: start: 20211130, end: 20211212
  2. CLARITHROMYCIN [Concomitant]
     Active Substance: CLARITHROMYCIN
     Indication: Product used for unknown indication
     Dosage: 1 DF, BID
     Route: 065
     Dates: start: 20211202, end: 20211206
  3. DOXYCYCLINE [Concomitant]
     Active Substance: DOXYCYCLINE
     Indication: Acute sinusitis
     Dosage: UNK (2 CAPSULES INITIALLY THEN ONE DAIL)
     Route: 065
     Dates: start: 20211130, end: 202203

REACTIONS (3)
  - Acute psychosis [Recovered/Resolved]
  - Affect lability [Recovered/Resolved]
  - Hypomania [Recovered/Resolved]

NARRATIVE: CASE EVENT DATE: 20211212
